FAERS Safety Report 7098856-X (Version None)
Quarter: 2010Q4

REPORT INFORMATION
  Report Type: 
  Country: None (occurrence: None)
  Receive Date: 20101112
  Receipt Date: 20101102
  Transmission Date: 20110411
  Serious: Yes (Hospitalization)
  Sender: FDA-Public Use
  Company Number: US-ROCHE-739277

PATIENT
  Sex: Female
  Weight: 71 kg

DRUGS (10)
  1. TRASTUZUMAB [Suspect]
     Dosage: FORM: VIALS. DOSE LEVEL: 6 UNITS: AUC
     Route: 042
     Dates: start: 20100806
  2. BEVACIZUMAB [Suspect]
     Dosage: FORM: VIALS DOSE LEVEL: 15 UNITS: MG/KG
     Route: 042
     Dates: start: 20100806, end: 20101026
  3. DOCETAXEL [Suspect]
     Dosage: DOSE LEVEL: 75 UNITS: MG/M2 DOSAGE FORM: VIALS
     Route: 042
     Dates: start: 20100806
  4. CARBOPLATIN [Suspect]
     Dosage: DOSE LEVEL: 6 UNITS: AUC FORM: VIALS
     Route: 042
     Dates: start: 20100806
  5. ATENOLOL [Concomitant]
     Dates: start: 20101006
  6. SINGULAIR [Concomitant]
     Dates: start: 20101006
  7. OMEPRAZOLE [Concomitant]
     Dates: start: 20100901
  8. LEXAPRO [Concomitant]
     Dates: start: 20100306
  9. ACETYLSALICYLIC ACID [Concomitant]
     Dates: start: 20080101
  10. METROGEL [Concomitant]
     Dosage: DAILY
     Dates: start: 20000101

REACTIONS (1)
  - GASTROINTESTINAL HAEMORRHAGE [None]
